FAERS Safety Report 5015599-4 (Version None)
Quarter: 2006Q2

REPORT INFORMATION
  Report Type: 
  Country: None (occurrence: None)
  Receive Date: 20060601
  Receipt Date: 20060523
  Transmission Date: 20061013
  Serious: Yes (Other)
  Sender: FDA-Public Use
  Company Number: US-JNJFOC-20060200456

PATIENT
  Sex: Female
  Weight: 29.03 kg

DRUGS (13)
  1. CONCERTA [Suspect]
  2. STRATTERA [Suspect]
     Route: 048
  3. MULTI-VITAMIN [Concomitant]
     Route: 048
  4. MULTI-VITAMIN [Concomitant]
     Route: 048
  5. MULTI-VITAMIN [Concomitant]
     Route: 048
  6. MULTI-VITAMIN [Concomitant]
     Route: 048
  7. MULTI-VITAMIN [Concomitant]
     Route: 048
  8. MULTI-VITAMIN [Concomitant]
     Route: 048
  9. MULTI-VITAMIN [Concomitant]
     Route: 048
  10. MULTI-VITAMIN [Concomitant]
     Route: 048
  11. EUCERIN [Concomitant]
     Route: 061
  12. EUCERIN [Concomitant]
     Route: 061
  13. EUCERIN [Concomitant]
     Route: 061

REACTIONS (1)
  - GROWTH RETARDATION [None]
